FAERS Safety Report 8839732 (Version 1)
Quarter: 2012Q4

REPORT INFORMATION
  Report Type: Spontaneous
  Country: PL (occurrence: None)
  Receive Date: 20121011
  Receipt Date: 20121011
  Transmission Date: 20130627
  Serious: No
  Sender: FDA-Public Use
  Company Number: B0836255A

PATIENT
  Age: 56 Year
  Sex: Female

DRUGS (2)
  1. HYCAMTIN [Suspect]
     Indication: CERVIX CARCINOMA
     Dosage: .75 mg/m2 / Cyclic / Unknown
     Dates: start: 201010, end: 201102
  2. CISPLATIN [Suspect]
     Dosage: 50 mg/m2 / Every 3 weeks / Unknown
     Dates: start: 201010, end: 201102

REACTIONS (10)
  - Haemorrhage [None]
  - Hydronephrosis [None]
  - Renal failure acute [None]
  - Genital haemorrhage [None]
  - Loss of consciousness [None]
  - Tachycardia [None]
  - Hypotension [None]
  - Anaemia [None]
  - Shock haemorrhagic [None]
  - Necrosis [None]
